FAERS Safety Report 6535016-2 (Version None)
Quarter: 2010Q1

REPORT INFORMATION
  Report Type: 
  Country: None (occurrence: None)
  Receive Date: 20100111
  Receipt Date: 20100111
  Transmission Date: 20100710
  Serious: No
  Sender: FDA-Public Use
  Company Number: None

PATIENT
  Age: 44 Year
  Sex: Female
  Weight: 113.3993 kg

DRUGS (1)
  1. CIPRO [Suspect]
     Indication: GASTROINTESTINAL INFECTION
     Dates: start: 20071101, end: 20080601

REACTIONS (5)
  - ARTHROPATHY [None]
  - BONE DISORDER [None]
  - DYSSTASIA [None]
  - MOVEMENT DISORDER [None]
  - MUSCLE DISORDER [None]
